FAERS Safety Report 4277620-0 (Version None)
Quarter: 2004Q1

REPORT INFORMATION
  Report Type: 
  Country: None (occurrence: None)
  Receive Date: 20040121
  Receipt Date: 20040108
  Transmission Date: 20041129
  Serious: No
  Sender: FDA-Public Use
  Company Number: 204126

PATIENT
  Age: 48 Year
  Sex: Male
  Weight: 110 kg

DRUGS (9)
  1. NUTROPIN AQ [Suspect]
     Indication: GROWTH HORMONE DEFICIENCY
     Dosage: 0.6 MG, QD, SUBCUTANEOUS
     Route: 058
     Dates: start: 20020521, end: 20021127
  2. LOTENSIN [Concomitant]
  3. PAXIL [Concomitant]
  4. LASIX [Concomitant]
  5. LEVOTHROID [Concomitant]
  6. CORTEF [Concomitant]
  7. LIPITOR [Concomitant]
  8. ZIAC [Concomitant]
  9. DEPOTEST (TESTOSTERONE CYPIONATE) [Concomitant]

REACTIONS (1)
  - DIABETES MELLITUS [None]
